FAERS Safety Report 7138044-1 (Version None)
Quarter: 2010Q4

REPORT INFORMATION
  Report Type: 
  Country: None (occurrence: None)
  Receive Date: 20101104
  Receipt Date: 20100315
  Transmission Date: 20110411
  Serious: Yes (Other)
  Sender: FDA-Public Use
  Company Number: US-WYE-H14152110

PATIENT
  Age: 80 Year
  Sex: Male
  Weight: 77.18 kg

DRUGS (1)
  1. ADVIL COLD AND SINUS [Suspect]
     Indication: SINUS CONGESTION
     Dosage: 1 CAPLET, ORAL
     Route: 048
     Dates: start: 20100301, end: 20100301

REACTIONS (3)
  - ABNORMAL DREAMS [None]
  - HALLUCINATION [None]
  - VERTIGO [None]
